FAERS Safety Report 18911565 (Version 1)
Quarter: 2021Q1

REPORT INFORMATION
  Report Type: Spontaneous
  Country: DE (occurrence: DE)
  Receive Date: 20210218
  Receipt Date: 20210218
  Transmission Date: 20210420
  Serious: No
  Sender: FDA-Public Use
  Company Number: DE-TOLMAR, INC.-21DE025449

PATIENT
  Weight: .63 kg

DRUGS (6)
  1. HYDROCORTISONE. [Concomitant]
     Active Substance: HYDROCORTISONE
     Indication: PROPHYLAXIS
     Dosage: UNK
     Route: 065
  2. ANTIBIOTICS [Concomitant]
     Active Substance: UNSPECIFIED INGREDIENT
     Indication: SEPSIS
     Dosage: UNK
     Route: 065
  3. ACYCLOVIR. [Suspect]
     Active Substance: ACYCLOVIR
     Dosage: 3 X 20 MG/KG
     Route: 042
  4. ACYCLOVIR. [Suspect]
     Active Substance: ACYCLOVIR
     Indication: CONGENITAL HERPES SIMPLEX INFECTION
     Dosage: 2 X 15 MG/KG
     Route: 042
  5. ACYCLOVIR. [Suspect]
     Active Substance: ACYCLOVIR
     Dosage: UNK
     Route: 065
  6. ACYCLOVIR. [Suspect]
     Active Substance: ACYCLOVIR
     Dosage: 3 X 20 MG/KG
     Route: 048

REACTIONS (1)
  - Herpes simplex reactivation [Unknown]
